FAERS Safety Report 7412472-9 (Version None)
Quarter: 2011Q2

REPORT INFORMATION
  Report Type: 
  Country: None (occurrence: None)
  Receive Date: 20110413
  Receipt Date: 20110405
  Transmission Date: 20111010
  Serious: Yes (Hospitalization)
  Sender: FDA-Public Use
  Company Number: PHHO2011CA00988

PATIENT
  Sex: Male
  Weight: 100 kg

DRUGS (3)
  1. ALLOPURINOL [Concomitant]
     Indication: GOUT
  2. PREDNISONE [Concomitant]
  3. AFINITOR [Suspect]
     Indication: METASTATIC RENAL CELL CARCINOMA
     Dosage: 10 MG, UNK
     Route: 048
     Dates: start: 20101124, end: 20110111

REACTIONS (3)
  - APHAGIA [None]
  - MUCOSAL INFLAMMATION [None]
  - BLOOD CREATININE INCREASED [None]
